FAERS Safety Report 22087197 (Version 2)
Quarter: 2023Q1

REPORT INFORMATION
  Report Type: Other
  Country: CA (occurrence: None)
  Receive Date: 20230313
  Receipt Date: 20230331
  Transmission Date: 20230417
  Serious: Yes (Death)
  Sender: FDA-Public Use
  Company Number: CA-ROCHE-3298016

PATIENT
  Age: 84 Year
  Sex: Male

DRUGS (9)
  1. ESBRIET [Suspect]
     Active Substance: PIRFENIDONE
     Indication: Idiopathic pulmonary fibrosis
     Dosage: DRUG DOSE FIRST ADMINISTERED IS 267 MG MILLIGRAM(S)
     Route: 048
     Dates: start: 20210125, end: 2021
  2. ESBRIET [Suspect]
     Active Substance: PIRFENIDONE
     Dosage: DRUG DOSE FIRST ADMINISTERED IS 801 MG MILLIGRAM(S)
     Route: 048
     Dates: start: 2021, end: 2021
  3. ESBRIET [Suspect]
     Active Substance: PIRFENIDONE
     Dosage: DRUG DOSE FIRST ADMINISTERED IS 534 MG MILLIGRAM(S)
     Route: 048
     Dates: start: 2021, end: 2021
  4. ESBRIET [Suspect]
     Active Substance: PIRFENIDONE
     Dosage: DRUG DOSE FIRST ADMINISTERED IS 2136 MG MILLIGRAM(S)?MOREDOSAGEINFO IS 8 PER DAY
     Route: 048
     Dates: start: 2021, end: 2021
  5. ESBRIET [Suspect]
     Active Substance: PIRFENIDONE
     Dosage: DRUG DOSE FIRST ADMINISTERED IS 801 MG MILLIGRAM(S)
     Route: 048
  6. METFORMIN [Concomitant]
     Active Substance: METFORMIN HYDROCHLORIDE
  7. PERINDOPRIL [Concomitant]
     Active Substance: PERINDOPRIL
  8. ROSUVASTATIN [Concomitant]
     Active Substance: ROSUVASTATIN
  9. TYLENOL [Concomitant]
     Active Substance: ACETAMINOPHEN

REACTIONS (1)
  - Disease progression [Fatal]

NARRATIVE: CASE EVENT DATE: 20230226
